FAERS Safety Report 21790336 (Version 1)
Quarter: 2022Q4

REPORT INFORMATION
  Report Type: Report from Study
  Country: US (occurrence: US)
  Receive Date: 20221228
  Receipt Date: 20221228
  Transmission Date: 20230113
  Serious: No
  Sender: FDA-Public Use
  Company Number: US-ABBVIE-22K-163-4383620-00

PATIENT
  Age: 62 Year
  Sex: Female

DRUGS (5)
  1. HUMIRA [Suspect]
     Active Substance: ADALIMUMAB
     Indication: Crohn^s disease
     Dosage: 80MG/0.8ML LOADING DOSE
     Route: 058
     Dates: start: 20220124
  2. HUMIRA [Suspect]
     Active Substance: ADALIMUMAB
     Route: 058
     Dates: start: 202201
  3. HUMIRA [Suspect]
     Active Substance: ADALIMUMAB
     Route: 058
     Dates: start: 202202
  4. PHAZYME [Concomitant]
     Active Substance: DIMETHICONE 410
     Indication: Product used for unknown indication
     Route: 065
  5. XANAX [Concomitant]
     Active Substance: ALPRAZOLAM
     Indication: Product used for unknown indication
     Route: 065

REACTIONS (33)
  - Insomnia [Unknown]
  - Loss of personal independence in daily activities [Unknown]
  - Haematochezia [Unknown]
  - Mucous stools [Unknown]
  - Diarrhoea [Recovered/Resolved]
  - Dyschezia [Unknown]
  - Defaecation urgency [Unknown]
  - Gastrointestinal sounds abnormal [Unknown]
  - Malaise [Unknown]
  - Oropharyngeal pain [Recovered/Resolved]
  - Dry skin [Unknown]
  - Corneal dystrophy [Unknown]
  - Fatigue [Unknown]
  - Corneal thinning [Unknown]
  - Asthenia [Unknown]
  - Frequent bowel movements [Unknown]
  - Constipation [Unknown]
  - Spinal pain [Not Recovered/Not Resolved]
  - Crying [Unknown]
  - Flatulence [Unknown]
  - Anxiety [Unknown]
  - Abdominal distension [Unknown]
  - Pruritus [Unknown]
  - Bone pain [Unknown]
  - Arthralgia [Unknown]
  - Crohn^s disease [Unknown]
  - Abdominal discomfort [Unknown]
  - Abdominal pain upper [Unknown]
  - Injection site pruritus [Unknown]
  - Peripheral swelling [Unknown]
  - Injection site swelling [Unknown]
  - Erythema [Unknown]
  - Nausea [Unknown]

NARRATIVE: CASE EVENT DATE: 20220501
